FAERS Safety Report 8171064-7 (Version None)
Quarter: 2012Q1

REPORT INFORMATION
  Report Type: 
  Country: None (occurrence: None)
  Receive Date: 20120228
  Receipt Date: 20120213
  Transmission Date: 20120608
  Serious: Yes (Other)
  Sender: FDA-Public Use
  Company Number: PHHY2011FR47640

PATIENT
  Sex: Female

DRUGS (57)
  1. PERGOLIDE MESYLATE [Suspect]
     Dosage: 1 MG, TID
     Route: 048
  2. MODOPAR [Suspect]
     Dosage: 125 MG, 5 TIMES PER DAY
     Route: 048
     Dates: start: 20070417, end: 20071001
  3. PRAMIPEXOLE DIHYDROCHLORIDE [Suspect]
     Dosage: 1 TABLET 3 TIMES PER DAY FROM THE SECOND WEEK
     Dates: start: 20080415, end: 20081021
  4. IMOVANE [Concomitant]
     Dosage: 7.5 MG, QD
     Dates: start: 20100212
  5. GALANTAMINE HYDROBROMIDE [Concomitant]
     Indication: MEMORY IMPAIRMENT
     Dosage: 4 MG, BID
     Dates: start: 20111030
  6. STALEVO 100 [Suspect]
     Dosage: 100 MG, MORNI, 150 MG, 1 TAB (EVERY 2 HRS)7 TO 8 TIMES PER DAY AND ONE TABLET IN NIGHT IF REQUIRED.
     Route: 048
  7. PERGOLIDE MESYLATE [Suspect]
     Dosage: 0.25 MG, 0.5 TABLETS THREE TIMES PER DAY
     Route: 048
     Dates: start: 20020416, end: 20020601
  8. PERGOLIDE MESYLATE [Suspect]
     Dosage: 1.5 MG, AT FIRST WEEK
     Route: 048
  9. PERGOLIDE MESYLATE [Suspect]
     Dosage: 0.5-0.5-0.5
     Dates: start: 20020616
  10. PERGOLIDE MESYLATE [Suspect]
     Dosage: 0.5-1-1
     Dates: start: 20020601
  11. PERGOLIDE MESYLATE [Suspect]
     Dosage: 1 MG, TID
  12. MODOPAR [Suspect]
     Dosage: 125 MG 6 TIMES PER DAY
     Dates: start: 20071016, end: 20081001
  13. MODOPAR [Suspect]
     Dosage: 125 MG 6 TIMES PER DAY
     Route: 048
     Dates: start: 20061128, end: 20070401
  14. MODOPAR [Suspect]
     Dosage: 62.5 MG, 1 CAPSULES 4 TIMES A DAY
     Dates: start: 20020416
  15. PNEUMO [Concomitant]
     Dosage: UNK UKN, UNK
     Dates: start: 20090908
  16. REQUIP [Suspect]
     Dosage: 6 MG, UNK
     Route: 048
     Dates: start: 20030527
  17. TEMAZEPAM [Concomitant]
     Dosage: 50 MG, QD
     Dates: start: 20081021
  18. TEMAZEPAM [Concomitant]
     Dosage: 50 MG, UNK
     Dates: start: 20060606
  19. ZOLPIDEM [Concomitant]
     Dosage: 1 DF, DAILY
     Dates: start: 20090303
  20. GALANTAMINE HYDROBROMIDE [Concomitant]
     Dosage: 4 MG AT 1 TAB IN THE EVENING FOR THE FIRST WEEK AND 1 TAB TWICE PER DAY
     Dates: start: 20030722
  21. CLONAZEPAM [Concomitant]
     Dosage: 2.5 MG, UNK
  22. STALEVO 100 [Suspect]
     Dosage: 100 MG, 1 TABLET DAILY (ENTACAPONE 200 MG, LEVODOPA 100 MG CARBIDOPA 25 MG )
     Route: 048
     Dates: start: 20090303, end: 20100401
  23. PERGOLIDE MESYLATE [Suspect]
     Dosage: 2 TABLETS 3 TIMES PER DAY THE SECOND WEEK
  24. TEMAZEPAM [Concomitant]
     Dosage: 50 MG, UNK
     Dates: start: 20070417
  25. ACETAMINOPHEN [Concomitant]
     Indication: PYREXIA
     Dosage: 1 DF, TID
     Dates: start: 20090908
  26. REQUIP [Suspect]
     Dosage: 8 MG THE MORNING AND 4 MG THE EVENING.
     Route: 048
     Dates: start: 20100423, end: 20101001
  27. REQUIP [Suspect]
     Dosage: 10 MG, UNK
     Route: 048
     Dates: start: 20101020, end: 20110422
  28. PERGOLIDE MESYLATE [Suspect]
     Dosage: 3 MG, DAILY, FOURTH WEEK
     Route: 048
     Dates: end: 20030701
  29. PERGOLIDE MESYLATE [Suspect]
     Dosage: 1 MG, 0.5 TABS 3 TIMES PER DAY THE FIRST WEEK AND 1 TAB 3 TIMES PER DAY THE SECOND WEEK.
     Dates: start: 20070112
  30. MODOPAR [Suspect]
     Dosage: 125 MG, 4 TIMES PER DAY
     Route: 048
     Dates: start: 20020604, end: 20040301
  31. TRIVASTAL [Concomitant]
     Dosage: 50 MG, UNK
     Dates: start: 20061128
  32. STALEVO 100 [Suspect]
     Dosage: 200 MG, ONE TABLET IN MORNING, 125 MG, ONE TABLET SIX TO EIGHT TIMES PER DAY
     Route: 048
     Dates: start: 20100423, end: 20101001
  33. PERGOLIDE MESYLATE [Suspect]
     Dosage: 2 MG, DAILY SECOND WEEK
     Route: 048
  34. PERGOLIDE MESYLATE [Suspect]
     Dosage: 1 MG, 3 TABS DAILY
     Dates: start: 20070417
  35. MODOPAR [Suspect]
     Indication: MEMORY IMPAIRMENT
     Dosage: 62.5 MG, 4 TIMES PER DAY
     Route: 048
     Dates: start: 20011211, end: 20020601
  36. MODOPAR [Suspect]
     Dosage: 125 MG 1 PER DAY
     Route: 048
     Dates: start: 20040323, end: 20041001
  37. MODOPAR [Suspect]
     Dosage: 125MG, FIVE TIMES PER DAY
     Route: 048
     Dates: start: 20041012, end: 20061101
  38. TEMAZEPAM [Concomitant]
     Dosage: 0.5 DAILY
     Dates: start: 20061128
  39. GALANTAMINE HYDROBROMIDE [Concomitant]
     Dosage: 4 MG, BID
     Dates: start: 20111030
  40. STALEVO 100 [Suspect]
     Dosage: 100 MG, ONE TABLET IN MORNING,125 MG, 1 TABLET SEVEN TIMES PER DAY
     Route: 048
     Dates: start: 20101020, end: 20110401
  41. PERGOLIDE MESYLATE [Suspect]
     Dosage: 0.05 THREE TIMES PER DAY THE FIRST WEEK
     Dates: start: 20011211, end: 20100423
  42. PERGOLIDE MESYLATE [Suspect]
     Dosage: 1 MG THREE TIMES PER DAY
     Dates: start: 20081021, end: 20100401
  43. PERGOLIDE MESYLATE [Suspect]
     Dosage: 0.1 MG, TID
     Route: 048
     Dates: start: 20011201, end: 20020401
  44. PERGOLIDE MESYLATE [Suspect]
     Dosage: 2.5 MG, DAILY 3RD WEEK
     Route: 048
  45. PERGOLIDE MESYLATE [Suspect]
     Dosage: 1 MG,1 TAB 3 TIMES PER DAY, THEN THE SECOND WEEK AT 2 TABS DAILY
     Dates: start: 20061128
  46. MODOPAR [Suspect]
     Dosage: 125 MG, 7 TIMES PER DAY
     Route: 048
     Dates: start: 20080415, end: 20100423
  47. MUXOL [Concomitant]
     Dosage: 0.3 %, ORAL SOLUTION TWICE PER DAY.
     Route: 048
     Dates: start: 20090908
  48. HEPT-A-MYL [Concomitant]
     Indication: ORTHOSTATIC HYPOTENSION
     Dosage: 1 DF, TID
     Dates: start: 20111211
  49. PARLODEL [Concomitant]
     Dosage: 2.5 MG, UNK
  50. MODOPAR [Suspect]
     Dosage: 125 MG, AT 1 DISPERSIBLE TABLET IN THE MORNING.
     Route: 048
     Dates: start: 20101020
  51. MODOPAR [Suspect]
     Dosage: 125 MG, 1 CAPSULE 4 TIME PER DAY
     Dates: start: 20030527
  52. PRAMIPEXOLE DIHYDROCHLORIDE [Suspect]
     Dosage: 0.5 TABLETS 3 TIMES PER DAY FOR FIRST WEEK
     Dates: start: 20080415
  53. LEXOMIL [Concomitant]
     Dosage: 0.25 DF,IF REQUIRED.
     Dates: start: 20100211
  54. AUGMENTIN '125' [Concomitant]
     Dosage: 2 DF, TID
     Dates: start: 20090908
  55. IMOVANE [Concomitant]
     Dosage: 2 DF, DAILY
     Dates: start: 20090908
  56. HEPT-A-MYL [Concomitant]
     Dosage: 4 TABLETS IN MORNING , 4 TABLETS AT MIDDAY AND 3 TABS AT EVENING
     Dates: start: 20020604
  57. MOTILIUM [Concomitant]
     Dosage: 2 TABS THREE TIME A DAY

REACTIONS (13)
  - RIB FRACTURE [None]
  - THOUGHT BLOCKING [None]
  - SUICIDAL IDEATION [None]
  - DYSTONIA [None]
  - MIDDLE INSOMNIA [None]
  - DEPRESSION [None]
  - TREMOR [None]
  - GAIT DISTURBANCE [None]
  - SLUGGISHNESS [None]
  - FALL [None]
  - HALLUCINATION, VISUAL [None]
  - PATHOLOGICAL GAMBLING [None]
  - CRYING [None]
